FAERS Safety Report 6432054-5 (Version None)
Quarter: 2009Q4

REPORT INFORMATION
  Report Type: 
  Country: None (occurrence: None)
  Receive Date: 20091109
  Receipt Date: 20091104
  Transmission Date: 20100525
  Serious: Yes (Hospitalization, Other)
  Sender: FDA-Public Use
  Company Number: DE-BAYER-200916232GPV

PATIENT
  Age: 70 Year
  Sex: Female
  Weight: 48 kg

DRUGS (2)
  1. AVELOX [Suspect]
     Indication: PNEUMONIA
     Route: 048
     Dates: start: 20090101, end: 20090101
  2. NEXIUM [Concomitant]
     Indication: DRUG USE FOR UNKNOWN INDICATION
     Route: 065

REACTIONS (6)
  - ACUTE ABDOMEN [None]
  - CLOSTRIDIUM DIFFICILE COLITIS [None]
  - DIARRHOEA HAEMORRHAGIC [None]
  - ILEUS [None]
  - PERITONITIS [None]
  - SEPSIS [None]
